FAERS Safety Report 6070998-7 (Version None)
Quarter: 2009Q1

REPORT INFORMATION
  Report Type: 
  Country: None (occurrence: None)
  Receive Date: 20090209
  Receipt Date: 20090205
  Transmission Date: 20090719
  Serious: Yes (Death, Life-Threatening, Other)
  Sender: FDA-Public Use
  Company Number: B0528435A

PATIENT
  Age: 63 Year
  Sex: Male
  Weight: 44 kg

DRUGS (18)
  1. ARRANON [Suspect]
     Dosage: 1500MGK PER DAY
     Route: 042
     Dates: start: 20080623, end: 20080627
  2. PENTCILLIN [Concomitant]
     Indication: PNEUMONIA
     Dosage: 4G PER DAY
     Route: 042
     Dates: start: 20080619, end: 20080620
  3. ITRIZOLE [Concomitant]
     Indication: PNEUMONIA
     Dosage: 200MG PER DAY
     Route: 042
     Dates: start: 20080619, end: 20080621
  4. MAXIPIME [Concomitant]
     Indication: PNEUMONIA
     Dosage: 4G PER DAY
     Route: 042
     Dates: start: 20080620, end: 20080626
  5. TARGOCID [Concomitant]
     Indication: PNEUMONIA
     Dosage: 400MG PER DAY
     Route: 042
     Dates: start: 20080621, end: 20080702
  6. FUNGIZONE [Concomitant]
     Indication: PNEUMONIA
     Route: 042
     Dates: start: 20080621, end: 20080701
  7. CRAVIT [Concomitant]
     Indication: PNEUMONIA
     Dosage: 400MG PER DAY
     Route: 048
     Dates: start: 20080620, end: 20080625
  8. UNKNOWN [Concomitant]
     Indication: DISSEMINATED INTRAVASCULAR COAGULATION
     Route: 042
     Dates: start: 20080620, end: 20080701
  9. TAZOCIN [Concomitant]
     Indication: DISSEMINATED INTRAVASCULAR COAGULATION
     Dosage: 5G PER DAY
     Route: 042
     Dates: start: 20080628, end: 20080701
  10. NEUART [Concomitant]
     Indication: DISSEMINATED INTRAVASCULAR COAGULATION
     Route: 042
     Dates: start: 20080620, end: 20080626
  11. INOVAN [Concomitant]
     Route: 042
     Dates: start: 20080620, end: 20080702
  12. DOBUTREX [Concomitant]
     Route: 042
     Dates: start: 20080624, end: 20080702
  13. NEUTROGIN [Concomitant]
     Route: 042
     Dates: start: 20080620, end: 20080702
  14. MICONAZOLE NITRATE [Concomitant]
     Route: 061
     Dates: start: 20080620, end: 20080701
  15. BAKTAR [Concomitant]
     Route: 048
     Dates: start: 20080619, end: 20080701
  16. ZYLORIC [Concomitant]
     Route: 048
     Dates: start: 20080619, end: 20080625
  17. RHYTHMY [Concomitant]
     Indication: INSOMNIA
     Route: 048
     Dates: start: 20080621
  18. LOXONIN [Concomitant]
     Route: 048
     Dates: start: 20080620, end: 20080701

REACTIONS (19)
  - ALTERED STATE OF CONSCIOUSNESS [None]
  - ARRHYTHMIA [None]
  - BONE MARROW FAILURE [None]
  - DISORIENTATION [None]
  - HAEMATOCRIT DECREASED [None]
  - HAEMOGLOBIN DECREASED [None]
  - HYPOTENSION [None]
  - PLATELET COUNT DECREASED [None]
  - PRODUCTIVE COUGH [None]
  - PULMONARY HAEMORRHAGE [None]
  - RED BLOOD CELL COUNT DECREASED [None]
  - RESPIRATORY ARREST [None]
  - RESTLESSNESS [None]
  - SEPSIS [None]
  - SOMNOLENCE [None]
  - SPEECH DISORDER [None]
  - VENTRICULAR EXTRASYSTOLES [None]
  - VENTRICULAR FIBRILLATION [None]
  - WHITE BLOOD CELL COUNT DECREASED [None]
